FAERS Safety Report 6834569-4 (Version None)
Quarter: 2010Q3

REPORT INFORMATION
  Report Type: 
  Country: None (occurrence: None)
  Receive Date: 20100712
  Receipt Date: 20070618
  Transmission Date: 20110219
  Serious: No
  Sender: FDA-Public Use
  Company Number: US-PFIZER INC-2007028113

PATIENT
  Sex: Female
  Weight: 61.23 kg

DRUGS (3)
  1. CHANTIX [Suspect]
     Indication: SMOKING CESSATION THERAPY
     Dates: start: 20070301
  2. CHANTIX [Suspect]
     Indication: ABDOMINAL PAIN
  3. ZANTAC [Suspect]
     Indication: ABDOMINAL PAIN

REACTIONS (4)
  - ABDOMINAL PAIN [None]
  - ABNORMAL DREAMS [None]
  - DRUG INEFFECTIVE [None]
  - SLEEP DISORDER [None]
